FAERS Safety Report 9477545 (Version 2)
Quarter: 2013Q3

REPORT INFORMATION
  Report Type: Report from Study
  Country: US (occurrence: US)
  Receive Date: 20130827
  Receipt Date: 20130910
  Transmission Date: 20140515
  Serious: Yes (Hospitalization)
  Sender: FDA-Public Use
  Company Number: US-ACTELION-A-US2013-87380

PATIENT
  Age: 55 Year
  Sex: Male

DRUGS (2)
  1. VELETRI [Suspect]
     Indication: PULMONARY ARTERIAL HYPERTENSION
     Dosage: 40 UNK, UNK
     Route: 042
     Dates: start: 20121025
  2. SILDENAFIL [Concomitant]

REACTIONS (2)
  - Urinary tract disorder [Unknown]
  - Herpes zoster [Unknown]
